FAERS Safety Report 16630375 (Version 1)
Quarter: 2019Q3

REPORT INFORMATION
  Report Type: Report from Study
  Country: None (occurrence: US)
  Receive Date: 20190725
  Receipt Date: 20190725
  Transmission Date: 20191004
  Serious: Yes (Hospitalization)
  Sender: FDA-Public Use
  Company Number: US-ABBVIE-19K-163-2861738-00

PATIENT
  Sex: Male

DRUGS (1)
  1. VENCLEXTA [Suspect]
     Active Substance: VENETOCLAX
     Indication: ACUTE MYELOID LEUKAEMIA
     Route: 048
     Dates: start: 20190422

REACTIONS (27)
  - Deep vein thrombosis [Unknown]
  - Fluid overload [Unknown]
  - Alanine aminotransferase decreased [Unknown]
  - Blood alkaline phosphatase increased [Unknown]
  - Vomiting [Unknown]
  - Blood pressure increased [Unknown]
  - Red blood cell count increased [Unknown]
  - Blood glucose increased [Unknown]
  - Bilirubin conjugated increased [Unknown]
  - Pseudomonal sepsis [Unknown]
  - Melaena [Unknown]
  - Blood sodium decreased [Unknown]
  - Proctalgia [Unknown]
  - Febrile neutropenia [Unknown]
  - Lymphocyte count decreased [Unknown]
  - Drug level decreased [Unknown]
  - Mucosal inflammation [Unknown]
  - Aspartate aminotransferase decreased [Unknown]
  - Nausea [Unknown]
  - Haemoglobin decreased [Unknown]
  - Transplant [Unknown]
  - Blood urea increased [Unknown]
  - Haematocrit decreased [Unknown]
  - Platelet count decreased [Unknown]
  - Acute kidney injury [Unknown]
  - Gamma-glutamyltransferase increased [Unknown]
  - Diarrhoea [Unknown]

NARRATIVE: CASE EVENT DATE: 2019
